FAERS Safety Report 6613697-2 (Version None)
Quarter: 2010Q1

REPORT INFORMATION
  Report Type: 
  Country: None (occurrence: None)
  Receive Date: 20100225
  Receipt Date: 20100107
  Transmission Date: 20100710
  Serious: Yes (Hospitalization, Other)
  Sender: FDA-Public Use
  Company Number: 2008BH004256

PATIENT
  Age: 31 Year
  Sex: Female
  Weight: 87.9978 kg

DRUGS (26)
  1. HEPARIN SODIUM [Suspect]
     Indication: CENTRAL VENOUS CATHETERISATION
     Dosage: SEE IMAGE
     Route: 042
     Dates: start: 20070209, end: 20070209
  2. HEPARIN SODIUM [Suspect]
     Indication: CENTRAL VENOUS CATHETERISATION
     Dosage: SEE IMAGE
     Route: 042
     Dates: start: 20070210, end: 20070210
  3. HEPARIN SODIUM [Suspect]
     Indication: CENTRAL VENOUS CATHETERISATION
     Dosage: SEE IMAGE
     Route: 042
     Dates: start: 20070420, end: 20070420
  4. HEPARIN SODIUM [Suspect]
     Indication: CENTRAL VENOUS CATHETERISATION
     Dosage: SEE IMAGE
     Route: 042
     Dates: start: 20070421, end: 20070421
  5. HEPARIN SODIUM [Suspect]
     Indication: CENTRAL VENOUS CATHETERISATION
     Dosage: SEE IMAGE
     Route: 042
     Dates: start: 20070801, end: 20070807
  6. HEPARIN SODIUM [Suspect]
     Indication: CENTRAL VENOUS CATHETERISATION
     Dosage: SEE IMAGE
     Route: 042
     Dates: start: 20070912, end: 20070912
  7. HEPARIN SODIUM [Suspect]
     Indication: CENTRAL VENOUS CATHETERISATION
     Dosage: SEE IMAGE
     Route: 042
     Dates: start: 20071027, end: 20071027
  8. HEPARIN SODIUM [Suspect]
     Indication: CENTRAL VENOUS CATHETERISATION
     Dosage: SEE IMAGE
     Route: 042
     Dates: start: 20080101, end: 20080101
  9. HEPARIN SODIUM [Suspect]
     Indication: CENTRAL VENOUS CATHETERISATION
     Dosage: SEE IMAGE
     Route: 042
     Dates: start: 20080228, end: 20080228
  10. HEPARIN SODIUM [Suspect]
     Indication: CENTRAL VENOUS CATHETERISATION
     Dosage: SEE IMAGE
     Route: 042
     Dates: start: 20060901, end: 20080301
  11. HEPARIN SODIUM 1,000 UNITS AND SODIUM CHLORIDE 0.9% [Suspect]
     Indication: DRUG USE FOR UNKNOWN INDICATION
     Dosage: IV
     Route: 011
     Dates: start: 20071210, end: 20080301
  12. HEPARIN SODIUM 5,000 UNITS IN DEXTROSE 5% [Suspect]
     Indication: DRUG USE FOR UNKNOWN INDICATION
     Dosage: IV
     Route: 042
     Dates: start: 20080125, end: 20080128
  13. LOVENOX [Concomitant]
  14. METOPROLOL TARTRATE [Concomitant]
  15. VITAMIN B-12 [Concomitant]
  16. MULTI-VITAMINS [Concomitant]
  17. LORTAB [Concomitant]
  18. PHENERGAN HCL [Concomitant]
  19. WARFARIN SODIUM [Concomitant]
  20. DIHYDROERGOTAMINE [Concomitant]
  21. HYDROCODONE [Concomitant]
  22. REGLAN [Concomitant]
  23. VALIUM [Concomitant]
  24. SOMA [Concomitant]
  25. OXYCONTIN [Concomitant]
  26. AMBIEN [Concomitant]

REACTIONS (24)
  - BACK PAIN [None]
  - BREAST MASS [None]
  - CELLULITIS [None]
  - CHEST PAIN [None]
  - DEEP VEIN THROMBOSIS [None]
  - DEVICE RELATED INFECTION [None]
  - DYSGEUSIA [None]
  - EMBOLISM [None]
  - FLUSHING [None]
  - HAEMATEMESIS [None]
  - HAEMOGLOBIN DECREASED [None]
  - HEPATIC STEATOSIS [None]
  - INJECTION SITE IRRITATION [None]
  - JOINT DISLOCATION [None]
  - MIGRAINE [None]
  - PULMONARY CONGESTION [None]
  - RASH [None]
  - RECTAL HAEMORRHAGE [None]
  - SEPSIS [None]
  - STAPHYLOCOCCAL INFECTION [None]
  - SUPERIOR VENA CAVAL STENOSIS [None]
  - SWELLING FACE [None]
  - THROMBOSIS [None]
  - WOUND DEHISCENCE [None]
